FAERS Safety Report 12218583 (Version 3)
Quarter: 2016Q2

REPORT INFORMATION
  Report Type: Spontaneous
  Country: JP (occurrence: JP)
  Receive Date: 20160329
  Receipt Date: 20160622
  Transmission Date: 20160815
  Serious: Yes (Death, Hospitalization)
  Sender: FDA-Public Use
  Company Number: JP-PFIZER INC-2016178077

PATIENT
  Age: 69 Year
  Sex: Male

DRUGS (10)
  1. CALCIUM FOLINATE [Suspect]
     Active Substance: LEUCOVORIN CALCIUM
     Indication: RECTAL CANCER
     Dosage: UNK (5 COURSES)
     Dates: start: 20101221
  2. 5-FU [Suspect]
     Active Substance: FLUOROURACIL
     Indication: RECTAL CANCER
     Dosage: UNK UNK, CYCLIC
     Route: 040
     Dates: start: 20100321
  3. CAMPTO [Suspect]
     Active Substance: IRINOTECAN
     Dosage: UNK, 1X/DAY (2ND CYCLE)
     Route: 041
     Dates: start: 20110113, end: 20110113
  4. CAMPTO [Suspect]
     Active Substance: IRINOTECAN
     Dosage: UNK, 1X/DAY (5TH CYCLE)
     Route: 041
     Dates: start: 20110317, end: 20110317
  5. AVASTIN [Suspect]
     Active Substance: BEVACIZUMAB
     Indication: RECTAL CANCER
     Dosage: UNK, CYCLIC
     Dates: start: 20100723
  6. CAMPTO [Suspect]
     Active Substance: IRINOTECAN
     Dosage: UNK, 1X/DAY (3RD CYCLE)
     Route: 041
     Dates: start: 20110203, end: 20110203
  7. AVASTIN [Suspect]
     Active Substance: BEVACIZUMAB
     Dosage: UNK (5 COURSES)
     Dates: start: 20101221
  8. CAMPTO [Suspect]
     Active Substance: IRINOTECAN
     Indication: RECTAL CANCER
     Dosage: UNK, 1X/DAY
     Route: 041
     Dates: start: 20101221, end: 20101221
  9. ELPLAT [Concomitant]
     Active Substance: OXALIPLATIN
     Indication: RECTAL CANCER
     Dosage: UNK UNK, 1X/DAY
     Route: 041
     Dates: start: 20100321
  10. CAMPTO [Suspect]
     Active Substance: IRINOTECAN
     Dosage: UNK, 1X/DAY (4TH CYCLE)
     Route: 041
     Dates: start: 20110224, end: 20110224

REACTIONS (1)
  - Thrombotic thrombocytopenic purpura [Fatal]

NARRATIVE: CASE EVENT DATE: 20110407
